FAERS Safety Report 22175614 (Version 1)
Quarter: 2023Q2

REPORT INFORMATION
  Report Type: Spontaneous
  Country: BE (occurrence: BE)
  Receive Date: 20230405
  Receipt Date: 20230405
  Transmission Date: 20230722
  Serious: Yes (Death)
  Sender: FDA-Public Use
  Company Number: BE-SEATTLE GENETICS-2023SGN01021

PATIENT
  Age: 55 Year
  Sex: Female
  Weight: 58.200 kg

DRUGS (5)
  1. CAPECITABINE [Suspect]
     Active Substance: CAPECITABINE
     Indication: HER2 positive breast cancer
     Dosage: 1000 MG/M2 BID EVERY 21 DAYS
     Route: 048
  2. TRASTUZUMAB [Suspect]
     Active Substance: TRASTUZUMAB
     Indication: HER2 positive breast cancer
     Dosage: LOADING DOSE OF 8 MG/KG INTO THE VEIN (IV; INTRAVENOUSLY), FOLLOWED BY 6 MG/KG IV ONCE PER 21-DAY CY
     Route: 042
  3. TUCATINIB [Suspect]
     Active Substance: TUCATINIB
     Indication: HER2 positive breast cancer
     Dosage: 300 MG, QD?DAILY DOSE: 300 MILLIGRAM
     Dates: start: 20221215, end: 20230119
  4. TUCATINIB [Suspect]
     Active Substance: TUCATINIB
     Indication: HER2 positive breast cancer
     Dosage: 300 MG, QD?DAILY DOSE: 300 MILLIGRAM
     Dates: start: 20230127
  5. KEPPRA [Concomitant]
     Active Substance: LEVETIRACETAM
     Dosage: 500 MG

REACTIONS (1)
  - Metastases to central nervous system [Fatal]

NARRATIVE: CASE EVENT DATE: 20230120
